FAERS Safety Report 16902066 (Version 1)
Quarter: 2019Q4

REPORT INFORMATION
  Report Type: Spontaneous
  Country: DE (occurrence: DE)
  Receive Date: 20191010
  Receipt Date: 20191010
  Transmission Date: 20200122
  Serious: Yes (Hospitalization, Disabling, Other)
  Sender: FDA-Public Use
  Company Number: DE-TEVA-2019-DE-1118984

PATIENT
  Age: 58 Year
  Sex: Male
  Weight: 60 kg

DRUGS (9)
  1. BISOHEXAL 5 MG [Concomitant]
     Dosage: 5 MG
  2. BICANORM 1000 MG [Concomitant]
     Dosage: 3000 MG
     Route: 048
  3. COLESTYRAMIN BTL. [Concomitant]
     Dosage: 3 DF
  4. LIXIANA 30 MG [Concomitant]
     Dosage: 1-0-0
  5. TAMSULOSIN 0,4 MG [Concomitant]
     Indication: BENIGN PROSTATIC HYPERPLASIA
     Dosage: 0.4 MG
     Route: 048
  6. GABAPENTIN 500 MG [Concomitant]
     Indication: POST HERPETIC NEURALGIA
     Dosage: 1500 MILLIGRAM DAILY;
     Route: 048
  7. SIMVASTATIN 40 MG FILMTABLETTEN [Suspect]
     Active Substance: SIMVASTATIN
     Indication: HYPERLIPIDAEMIA
     Route: 048
  8. URSOFALK 250 MG [Concomitant]
     Active Substance: URSODIOL
     Dosage: 500 MG
     Route: 048
  9. HEPA-MERZ BTL. [Concomitant]
     Dosage: 1-1-1

REACTIONS (2)
  - Rhabdomyolysis [Not Recovered/Not Resolved]
  - General physical health deterioration [Unknown]

NARRATIVE: CASE EVENT DATE: 20190906
